FAERS Safety Report 17454560 (Version 1)
Quarter: 2020Q1

REPORT INFORMATION
  Report Type: Spontaneous
  Country: US (occurrence: US)
  Receive Date: 20200224
  Receipt Date: 20200224
  Transmission Date: 20200409
  Serious: Yes (Death)
  Sender: FDA-Public Use
  Company Number: None

PATIENT
  Sex: Female

DRUGS (3)
  1. GRANIX [Suspect]
     Active Substance: TBO-FILGRASTIM
     Indication: BREAST CANCER
     Dosage: ?          OTHER FREQUENCY:QDX3DAYS;?
     Route: 058
     Dates: start: 20191228
  2. CYCLOPHOSPHAMIDE. [Concomitant]
     Active Substance: CYCLOPHOSPHAMIDE
  3. UDENYCA [Suspect]
     Active Substance: PEGFILGRASTIM-CBQV
     Indication: BREAST CANCER
     Dosage: ?          OTHER FREQUENCY:ONCE;?
     Route: 058
     Dates: start: 20191016

REACTIONS (1)
  - Death [None]
